FAERS Safety Report 11431964 (Version 2)
Quarter: 2015Q4

REPORT INFORMATION
  Report Type: Spontaneous
  Country: PR (occurrence: US)
  Receive Date: 20150828
  Receipt Date: 20151218
  Transmission Date: 20160304
  Serious: Yes (Life-Threatening, Hospitalization, Other)
  Sender: FDA-Public Use
  Company Number: PR-GLAXOSMITHKLINE-US2015GSK123494

PATIENT
  Sex: Male

DRUGS (1)
  1. LAMICTAL [Suspect]
     Active Substance: LAMOTRIGINE
     Indication: PRODUCT USED FOR UNKNOWN INDICATION
     Route: 065

REACTIONS (4)
  - Toxic epidermal necrolysis [Unknown]
  - Apparent death [Unknown]
  - Injury [Unknown]
  - Stevens-Johnson syndrome [Unknown]
